FAERS Safety Report 16539294 (Version 6)
Quarter: 2020Q2

REPORT INFORMATION
  Report Type: Spontaneous
  Country: US (occurrence: US)
  Receive Date: 20190708
  Receipt Date: 20200615
  Transmission Date: 20200713
  Serious: Yes (Hospitalization, Other)
  Sender: FDA-Public Use
  Company Number: US-PFIZER INC-2019291954

PATIENT
  Age: 50 Year
  Sex: Female
  Weight: 56 kg

DRUGS (9)
  1. LIPITOL [Concomitant]
     Dosage: 10 MG, ONCE A DAY
     Dates: start: 20190813
  2. BAYER ASPIRIN [Concomitant]
     Active Substance: ASPIRIN
     Dosage: UNK, DAILY (LOW DOSE PER DAY)
     Dates: start: 20190813
  3. EFFEXOR XR [Suspect]
     Active Substance: VENLAFAXINE HYDROCHLORIDE
     Indication: BLOOD DISORDER
     Dosage: 75 MG, TWICE DAILY
     Dates: start: 1977
  4. EFFEXOR XR [Suspect]
     Active Substance: VENLAFAXINE HYDROCHLORIDE
     Dosage: 37.5 MG, TWICE A DAY
     Route: 048
     Dates: start: 2002
  5. ZENAX [Concomitant]
     Indication: PAIN
     Dosage: 2 MG, OCCASIONALLY
     Dates: start: 20190820
  6. EFFEXOR XR [Suspect]
     Active Substance: VENLAFAXINE HYDROCHLORIDE
     Dosage: 37.5 MG, ONCE A DAY
     Route: 048
     Dates: start: 1998
  7. EFFEXOR XR [Suspect]
     Active Substance: VENLAFAXINE HYDROCHLORIDE
     Dosage: 37.5 MG, DAILY
     Route: 048
     Dates: start: 2000
  8. EFFEXOR XR [Suspect]
     Active Substance: VENLAFAXINE HYDROCHLORIDE
     Dosage: 37.5 MG, 1X/DAY [ONCE A DAY]
     Route: 048
  9. NORVASC [Concomitant]
     Active Substance: AMLODIPINE BESYLATE
     Dosage: 2.5 MG, 1X/DAY
     Dates: start: 20190813

REACTIONS (5)
  - Thyroid disorder [Not Recovered/Not Resolved]
  - Macular degeneration [Not Recovered/Not Resolved]
  - Breast cancer [Recovered/Resolved]
  - Product use in unapproved indication [Unknown]
  - Off label use [Unknown]

NARRATIVE: CASE EVENT DATE: 1977
